FAERS Safety Report 11575100 (Version 1)
Quarter: 2015Q3

REPORT INFORMATION
  Report Type: Spontaneous
  Country: US (occurrence: US)
  Receive Date: 20150916
  Receipt Date: 20150916
  Transmission Date: 20151125
  Serious: No
  Sender: FDA-Public Use
  Company Number: US-ELI_LILLY_AND_COMPANY-US200911004431

PATIENT
  Age: 72 Year
  Sex: Female

DRUGS (3)
  1. FORTEO [Suspect]
     Active Substance: TERIPARATIDE
     Indication: OSTEOPOROSIS
     Dosage: UNK, UNK
     Dates: start: 200910, end: 20091111
  2. FORTEO [Suspect]
     Active Substance: TERIPARATIDE
     Dates: start: 20091114, end: 20091115
  3. FORTEO [Suspect]
     Active Substance: TERIPARATIDE
     Dosage: UNK, QOD
     Dates: start: 20091116

REACTIONS (12)
  - Initial insomnia [Unknown]
  - Arthralgia [Unknown]
  - Insomnia [Not Recovered/Not Resolved]
  - Bone pain [Unknown]
  - Dyspnoea [Recovering/Resolving]
  - Influenza like illness [Unknown]
  - Nausea [Unknown]
  - Myalgia [Not Recovered/Not Resolved]
  - Off label use [Unknown]
  - Palpitations [Unknown]
  - Movement disorder [Unknown]
  - Foot deformity [Recovering/Resolving]

NARRATIVE: CASE EVENT DATE: 200910
